FAERS Safety Report 17365022 (Version 5)
Quarter: 2022Q3

REPORT INFORMATION
  Report Type: Spontaneous
  Country: CZ (occurrence: CZ)
  Receive Date: 20200204
  Receipt Date: 20220818
  Transmission Date: 20221026
  Serious: Yes (Other)
  Sender: FDA-Public Use
  Company Number: CZ-TEVA-2020-CZ-1170345

PATIENT
  Age: 42 Year
  Sex: Male
  Weight: 105 kg

DRUGS (8)
  1. METOPROLOL [Suspect]
     Active Substance: METOPROLOL
     Indication: Hypertension
     Dosage: 25 MILLIGRAM,2 X 25 MG
     Route: 065
  2. METOPROLOL [Suspect]
     Active Substance: METOPROLOL
     Dosage: 50 MILLIGRAM, ONCE A DAY
     Route: 065
  3. ROSUVASTATIN [Suspect]
     Active Substance: ROSUVASTATIN
     Indication: Dyslipidaemia
     Dosage: 10 MILLIGRAM, ONCE A DAY(10 MILLIGRAM DAILY;)
     Route: 065
  4. HYDROCHLOROTHIAZIDE\RAMIPRIL [Suspect]
     Active Substance: HYDROCHLOROTHIAZIDE\RAMIPRIL
     Indication: Hypertension
     Dosage: UNK, 5/12.5 MG
     Route: 065
  5. MOXONIDINE [Suspect]
     Active Substance: MOXONIDINE
     Indication: Hypertension
     Dosage: 0.2 MILLIGRAM, TWO TIMES A DAY
     Route: 048
  6. MOXONIDINE [Suspect]
     Active Substance: MOXONIDINE
     Dosage: 0.4 MILLIGRAM, ONCE A DAY
     Route: 065
  7. AMLODIPINE BESYLATE\INDAPAMIDE\PERINDOPRIL ARGININE [Suspect]
     Active Substance: AMLODIPINE BESYLATE\INDAPAMIDE\PERINDOPRIL ARGININE
     Indication: Hypertension
     Dosage: UNK,PERINDOPRIL 5 MG+ AMLODIPIN 10 MG+ INDAPAMID 1.25 MG
     Route: 065
  8. RAMIPRIL [Concomitant]
     Active Substance: RAMIPRIL
     Indication: Product used for unknown indication
     Dosage: UNK,5/12.5 MG
     Route: 065

REACTIONS (10)
  - Depressive symptom [Recovered/Resolved]
  - Erectile dysfunction [Recovered/Resolved]
  - Dry mouth [Recovered/Resolved]
  - Disturbance in attention [Recovered/Resolved]
  - Nightmare [Recovered/Resolved]
  - Metabolic syndrome [Recovered/Resolved]
  - Depression [Recovered/Resolved]
  - Renal impairment [Recovering/Resolving]
  - Albuminuria [Recovering/Resolving]
  - Treatment noncompliance [Recovered/Resolved]
